FAERS Safety Report 11316770 (Version 2)
Quarter: 2015Q3

REPORT INFORMATION
  Report Type: Spontaneous
  Country: US (occurrence: US)
  Receive Date: 20150728
  Receipt Date: 20150918
  Transmission Date: 20151125
  Serious: No
  Sender: FDA-Public Use
  Company Number: US-PFIZER INC-2015249274

PATIENT
  Age: 52 Year
  Sex: Female

DRUGS (5)
  1. PREMARIN [Suspect]
     Active Substance: ESTROGENS, CONJUGATED
     Dosage: 0.9 MG, 1X/DAY
     Dates: start: 2001
  2. PROTONIX [Concomitant]
     Active Substance: PANTOPRAZOLE SODIUM
     Dosage: 40 MG, 2X/DAY
     Dates: start: 2005
  3. TYLENOL [Concomitant]
     Active Substance: ACETAMINOPHEN
     Dosage: UNK
     Dates: start: 2001
  4. MOBIC [Concomitant]
     Active Substance: MELOXICAM
     Dosage: 15 MG, 1X/DAY
     Dates: start: 2005
  5. ATENOLOL/HYDROCHLOROTHIAZIDE [Concomitant]
     Dosage: UNK
     Dates: start: 2015

REACTIONS (1)
  - Malaise [Unknown]
